FAERS Safety Report 16275813 (Version 1)
Quarter: 2019Q2

REPORT INFORMATION
  Report Type: Spontaneous
  Country: US (occurrence: US)
  Receive Date: 20190506
  Receipt Date: 20190506
  Transmission Date: 20190711
  Serious: No
  Sender: FDA-Public Use
  Company Number: US-SA-2019SA114513

PATIENT
  Age: 21 Year
  Sex: Female

DRUGS (1)
  1. CABLIVI [Suspect]
     Active Substance: CAPLACIZUMAB-YHDP
     Indication: THROMBOTIC MICROANGIOPATHY
     Route: 058

REACTIONS (6)
  - Sleep disorder [Unknown]
  - Platelet count increased [Unknown]
  - Cough [Unknown]
  - Lip haemorrhage [Unknown]
  - Nasopharyngitis [Unknown]
  - Fatigue [Unknown]
